FAERS Safety Report 10415284 (Version 1)
Quarter: 2014Q3

REPORT INFORMATION
  Report Type: Spontaneous
  Country: US (occurrence: None)
  Receive Date: 20140827
  Receipt Date: 20140827
  Transmission Date: 20150326
  Serious: Yes (Hospitalization)
  Sender: FDA-Public Use
  Company Number: None

PATIENT
  Age: 56 Year
  Sex: Male
  Weight: 62.1 kg

DRUGS (1)
  1. SORAFENIB [Suspect]
     Active Substance: SORAFENIB

REACTIONS (4)
  - Constipation [None]
  - Abdominal pain [None]
  - Herpes zoster [None]
  - Decreased appetite [None]

NARRATIVE: CASE EVENT DATE: 20140815
